FAERS Safety Report 7810432-7 (Version None)
Quarter: 2011Q4

REPORT INFORMATION
  Report Type: 
  Country: None (occurrence: None)
  Receive Date: 20111012
  Receipt Date: 20111007
  Transmission Date: 20120403
  Serious: Yes (Other)
  Sender: FDA-Public Use
  Company Number: US-MERCK-1110USA01186

PATIENT
  Age: 49 Year
  Sex: Male

DRUGS (4)
  1. IVEMEND [Suspect]
     Indication: PROPHYLAXIS OF NAUSEA AND VOMITING
     Route: 042
     Dates: start: 20110914
  2. CISPLATIN [Concomitant]
     Route: 065
  3. IVEMEND [Suspect]
     Route: 042
     Dates: start: 20111005
  4. ALIMTA [Concomitant]
     Route: 065

REACTIONS (5)
  - BACK PAIN [None]
  - CHEST PAIN [None]
  - ERYTHEMA [None]
  - UNDERDOSE [None]
  - DYSPNOEA [None]
